FAERS Safety Report 16250774 (Version 1)
Quarter: 2019Q2

REPORT INFORMATION
  Report Type: Spontaneous
  Country: US (occurrence: US)
  Receive Date: 20190426
  Receipt Date: 20190426
  Transmission Date: 20190711
  Serious: Yes (Other)
  Sender: FDA-Public Use
  Company Number: None

PATIENT
  Age: 60 Year
  Sex: Female
  Weight: 67.05 kg

DRUGS (21)
  1. SACRAL NERVE STIMULATOR [Concomitant]
  2. BUPROPION HCL-XL [Concomitant]
  3. PRAVACHOL [Concomitant]
     Active Substance: PRAVASTATIN SODIUM
  4. ALPRAZOLAM. [Concomitant]
     Active Substance: ALPRAZOLAM
  5. EVISTA [Concomitant]
     Active Substance: RALOXIFENE HYDROCHLORIDE
  6. NUVIGIL [Concomitant]
     Active Substance: ARMODAFINIL
  7. HYDROCODON-APAP 10-325 [Concomitant]
     Active Substance: ACETAMINOPHEN\HYDROCODONE BITARTRATE
  8. VITAMIN B12 [Concomitant]
     Active Substance: CYANOCOBALAMIN
  9. CITALOPRAM [Concomitant]
     Active Substance: CITALOPRAM HYDROBROMIDE
  10. ZOFRAN [Concomitant]
     Active Substance: ONDANSETRON HYDROCHLORIDE
  11. SPINAL NERVE STIMULATOR [Concomitant]
  12. CLONAZEPAM. [Concomitant]
     Active Substance: CLONAZEPAM
  13. PROMETHEGAN [Concomitant]
     Active Substance: PROMETHAZINE HYDROCHLORIDE
  14. FENTANYL TRANSDERMAL SYSTEM [Suspect]
     Active Substance: FENTANYL
     Indication: IMPAIRED GASTRIC EMPTYING
     Dosage: ?          QUANTITY:1 PATCH(ES);OTHER FREQUENCY:EVERY 48 HOURS;?
     Route: 062
     Dates: start: 20190330, end: 20190417
  15. LINZESS [Concomitant]
     Active Substance: LINACLOTIDE
  16. GI STIMULATOR [Concomitant]
  17. PROTONIX [Concomitant]
     Active Substance: PANTOPRAZOLE SODIUM
  18. FENTANYL TRANSDERMAL SYSTEM [Suspect]
     Active Substance: FENTANYL
     Indication: IMPAIRED GASTRIC EMPTYING
     Dosage: ?          QUANTITY:1 PATCH(ES);OTHER FREQUENCY:EVERY 48 HOURS;?
     Route: 062
     Dates: start: 20190330, end: 20190417
  19. VIT D [Concomitant]
     Active Substance: VITAMIN D NOS
  20. FERRO-FOOD (IRON) [Concomitant]
  21. PRENATAL VITAMINS [Concomitant]
     Active Substance: VITAMINS

REACTIONS (22)
  - Night sweats [None]
  - Muscle twitching [None]
  - Cognitive disorder [None]
  - Fatigue [None]
  - Feeling abnormal [None]
  - Dysgeusia [None]
  - Feeling of body temperature change [None]
  - Incorrect drug administration rate [None]
  - Inappropriate schedule of product administration [None]
  - Oral discomfort [None]
  - Product substitution issue [None]
  - Nausea [None]
  - Tinnitus [None]
  - Abdominal discomfort [None]
  - Product quality issue [None]
  - Malaise [None]
  - Urinary tract infection [None]
  - Back pain [None]
  - Therapeutic product effect decreased [None]
  - Nervousness [None]
  - Gastrooesophageal reflux disease [None]
  - Herpes zoster [None]

NARRATIVE: CASE EVENT DATE: 20190331
